FAERS Safety Report 12965642 (Version 1)
Quarter: 2016Q4

REPORT INFORMATION
  Report Type: Spontaneous
  Country: US (occurrence: US)
  Receive Date: 20161122
  Receipt Date: 20161122
  Transmission Date: 20170207
  Serious: Yes (Life-Threatening, Other)
  Sender: FDA-Public Use
  Company Number: US-BAYER-2016-221186

PATIENT
  Age: 57 Year
  Sex: Female

DRUGS (2)
  1. ZANAFLEX [Interacting]
     Active Substance: TIZANIDINE HYDROCHLORIDE
     Dosage: UNK
  2. CIPRO [Suspect]
     Active Substance: CIPROFLOXACIN HYDROCHLORIDE
     Indication: KIDNEY INFECTION
     Dosage: UNK
     Dates: start: 20161115

REACTIONS (8)
  - Disorientation [None]
  - Muscular weakness [None]
  - Drug interaction [None]
  - Dizziness [None]
  - Drug administration error [None]
  - Loss of consciousness [None]
  - Nervousness [None]
  - Amnesia [None]

NARRATIVE: CASE EVENT DATE: 20161115
